FAERS Safety Report 18612348 (Version 2)
Quarter: 2021Q3

REPORT INFORMATION
  Report Type: Spontaneous
  Country: US (occurrence: US)
  Receive Date: 20201214
  Receipt Date: 20210818
  Transmission Date: 20211014
  Serious: No
  Sender: FDA-Public Use
  Company Number: US-PFIZER INC-2020491020

PATIENT
  Age: 73 Year
  Sex: Female

DRUGS (2)
  1. IBRANCE [Suspect]
     Active Substance: PALBOCICLIB
     Indication: BREAST CANCER FEMALE
     Dosage: 100 MG, CYCLIC (QD (ONCE A DAY) ON DAYS 1?21)
     Route: 048
     Dates: start: 20170307
  2. IBRANCE [Suspect]
     Active Substance: PALBOCICLIB
     Indication: MALIGNANT NIPPLE NEOPLASM FEMALE

REACTIONS (3)
  - Peripheral coldness [Unknown]
  - Gingival bleeding [Recovering/Resolving]
  - Hypoaesthesia [Unknown]
